FAERS Safety Report 24719831 (Version 1)
Quarter: 2024Q4

REPORT INFORMATION
  Report Type: Spontaneous
  Country: FR (occurrence: FR)
  Receive Date: 20241211
  Receipt Date: 20241211
  Transmission Date: 20250115
  Serious: Yes (Hospitalization, Other)
  Sender: GLAND PHARMA LTD
  Company Number: FR-GLANDPHARMA-FR-2024GLNLIT01237

PATIENT
  Age: 54 Year
  Sex: Female

DRUGS (2)
  1. MITOMYCIN [Suspect]
     Active Substance: MITOMYCIN
     Indication: Anal cancer
     Route: 065
  2. FLUOROURACIL [Concomitant]
     Active Substance: FLUOROURACIL
     Indication: Anal cancer
     Route: 065

REACTIONS (2)
  - Pulmonary veno-occlusive disease [Recovered/Resolved]
  - Product use in unapproved indication [Unknown]
